FAERS Safety Report 17375247 (Version 1)
Quarter: 2020Q1

REPORT INFORMATION
  Report Type: Spontaneous
  Country: CN (occurrence: CN)
  Receive Date: 20200205
  Receipt Date: 20200205
  Transmission Date: 20200409
  Serious: Yes (Death)
  Sender: FDA-Public Use
  Company Number: CN-STRIDES ARCOLAB LIMITED-2020SP001004

PATIENT

DRUGS (4)
  1. PREDNISOLONE. [Suspect]
     Active Substance: PREDNISOLONE
     Indication: GLOMERULONEPHRITIS MEMBRANOUS
     Dosage: 0.4 MG/KG/DAY, INITIAL DOSE
     Route: 048
  2. TACROLIMUS. [Suspect]
     Active Substance: TACROLIMUS
     Dosage: UNK, ADJUSTED
     Route: 065
  3. PREDNISOLONE. [Suspect]
     Active Substance: PREDNISOLONE
     Dosage: REDUCED BY 5MG EVERY 4 WEEKS TO 10 MG/DAY FOR 6 MONTHS
     Route: 065
  4. TACROLIMUS. [Suspect]
     Active Substance: TACROLIMUS
     Indication: GLOMERULONEPHRITIS MEMBRANOUS
     Dosage: 0.05 MG/KG/DAY, INITIAL DOSE
     Route: 065

REACTIONS (3)
  - Diabetes mellitus [Fatal]
  - Pneumonia [Fatal]
  - Off label use [Unknown]
